FAERS Safety Report 9100982 (Version 3)
Quarter: 2013Q3

REPORT INFORMATION
  Report Type: Spontaneous
  Country: US (occurrence: US)
  Receive Date: 20130214
  Receipt Date: 20130812
  Transmission Date: 20140515
  Serious: Yes (Death, Hospitalization, Other)
  Sender: FDA-Public Use
  Company Number: US-PFIZER INC-2013055468

PATIENT
  Age: 83 Year
  Sex: Male
  Weight: 67.57 kg

DRUGS (6)
  1. REVATIO [Suspect]
     Indication: EMPHYSEMA
     Dosage: 20 MG, 3X/DAY
     Dates: start: 20100812
  2. REVATIO [Suspect]
     Indication: PULMONARY FIBROSIS
  3. REVATIO [Suspect]
     Indication: CARDIAC DISORDER
  4. REVATIO [Suspect]
     Indication: PULMONARY HYPERTENSION
  5. NEXIUM [Concomitant]
     Dosage: 40 MG, 2X/DAY
  6. LIPITOR [Concomitant]
     Dosage: UNK,1X/DAY

REACTIONS (2)
  - Pulmonary hypertension [Fatal]
  - Pneumonia [Unknown]
